FAERS Safety Report 8065007-4 (Version None)
Quarter: 2012Q1

REPORT INFORMATION
  Report Type: 
  Country: None (occurrence: None)
  Receive Date: 20120124
  Receipt Date: 20091027
  Transmission Date: 20120608
  Serious: No
  Sender: FDA-Public Use
  Company Number: 2009BI034933

PATIENT
  Age: 51 Year
  Sex: Female

DRUGS (1)
  1. TYSABRI [Suspect]
     Indication: MULTIPLE SCLEROSIS
     Route: 042
     Dates: start: 20080703

REACTIONS (4)
  - NECK PAIN [None]
  - HEADACHE [None]
  - MUSCULOSKELETAL PAIN [None]
  - MUSCLE STRAIN [None]
